FAERS Safety Report 9046324 (Version 2)
Quarter: 2013Q1

REPORT INFORMATION
  Report Type: Spontaneous
  Country: ES (occurrence: ES)
  Receive Date: 20130201
  Receipt Date: 20130213
  Transmission Date: 20140127
  Serious: Yes (Hospitalization)
  Sender: FDA-Public Use
  Company Number: ES-JNJFOC-20130116849

PATIENT
  Age: 4 Year
  Sex: Male

DRUGS (2)
  1. IBUPROFEN [Suspect]
     Indication: NASOPHARYNGITIS
     Route: 065
  2. IBUPROFEN [Suspect]
     Indication: PYREXIA
     Route: 065

REACTIONS (2)
  - Haematemesis [Recovering/Resolving]
  - Gastritis erosive [Unknown]
